FAERS Safety Report 4644285-5 (Version None)
Quarter: 2005Q2

REPORT INFORMATION
  Report Type: 
  Country: None (occurrence: None)
  Receive Date: 20050425
  Receipt Date: 20050322
  Transmission Date: 20051028
  Serious: Yes (Life-Threatening, Hospitalization, Disabling)
  Sender: FDA-Public Use
  Company Number: US-MERCK-0503USA03894

PATIENT
  Age: 72 Year
  Sex: Female

DRUGS (3)
  1. VIOXX [Suspect]
     Indication: ARTHRITIS
     Route: 048
     Dates: start: 20020701, end: 20040901
  2. ZYPREXA [Concomitant]
     Route: 065
  3. SEROQUEL [Concomitant]
     Route: 065

REACTIONS (4)
  - CARDIAC FAILURE [None]
  - POOR PERIPHERAL CIRCULATION [None]
  - RESPIRATORY FAILURE [None]
  - VEIN DISORDER [None]
